FAERS Safety Report 10185011 (Version 1)
Quarter: 2014Q2

REPORT INFORMATION
  Report Type: Report from Study
  Country: ES (occurrence: ES)
  Receive Date: 20140521
  Receipt Date: 20140521
  Transmission Date: 20141212
  Serious: Yes (Hospitalization)
  Sender: FDA-Public Use
  Company Number: ES-ROCHE-1400527

PATIENT
  Age: 66 Year
  Sex: Female

DRUGS (5)
  1. RIBAVIRIN [Suspect]
     Indication: HEPATITIS C
     Route: 048
     Dates: start: 20120206
  2. RIBAVIRIN [Suspect]
     Route: 048
     Dates: start: 20120306, end: 20121015
  3. PEG-INTERFERON ALFA 2A [Suspect]
     Indication: HEPATITIS C
     Route: 058
     Dates: start: 20120206, end: 20121015
  4. INCIVO [Suspect]
     Indication: HEPATITIS C
     Route: 048
     Dates: start: 20120206, end: 20121015
  5. ARANESP [Concomitant]
     Route: 065
     Dates: end: 20140424

REACTIONS (2)
  - Anaemia [Recovered/Resolved]
  - Palpitations [Unknown]
